FAERS Safety Report 25142252 (Version 1)
Quarter: 2025Q1

REPORT INFORMATION
  Report Type: Spontaneous
  Country: US (occurrence: US)
  Receive Date: 20250331
  Receipt Date: 20250331
  Transmission Date: 20250408
  Serious: No
  Sender: PFIZER
  Company Number: US-PFIZER INC-202500066212

PATIENT
  Age: 73 Year
  Sex: Female

DRUGS (1)
  1. TUKYSA [Suspect]
     Active Substance: TUCATINIB
     Indication: HER2 positive colorectal cancer
     Dosage: 300 MG, 2X/DAY
     Route: 048

REACTIONS (2)
  - Off label use [Unknown]
  - Nervous system disorder [Not Recovered/Not Resolved]
